FAERS Safety Report 24772362 (Version 3)
Quarter: 2025Q3

REPORT INFORMATION
  Report Type: Report from Study
  Country: US (occurrence: US)
  Receive Date: 20241224
  Receipt Date: 20250803
  Transmission Date: 20251021
  Serious: Yes (Other)
  Sender: ALEXION PHARMACEUTICALS
  Company Number: US-AstraZeneca-CH-00768912A

PATIENT
  Sex: Male

DRUGS (2)
  1. ULTOMIRIS [Suspect]
     Active Substance: RAVULIZUMAB-CWVZ
     Indication: Myasthenia gravis
     Route: 065
  2. MESTINON [Concomitant]
     Active Substance: PYRIDOSTIGMINE BROMIDE
     Route: 065

REACTIONS (8)
  - Basal cell carcinoma [Unknown]
  - Peripheral embolism [Unknown]
  - Actinic keratosis [Unknown]
  - Bursitis infective [Unknown]
  - Weight increased [Unknown]
  - Skin papilloma [Unknown]
  - Skin lesion [Unknown]
  - Asthenia [Unknown]
